FAERS Safety Report 6050547-X (Version None)
Quarter: 2009Q1

REPORT INFORMATION
  Report Type: 
  Country: None (occurrence: None)
  Receive Date: 20090126
  Receipt Date: 20090116
  Transmission Date: 20090719
  Serious: Yes (Hospitalization)
  Sender: FDA-Public Use
  Company Number: JP-ABBOTT-08P-087-0494642-00

PATIENT
  Sex: Male
  Weight: 77 kg

DRUGS (5)
  1. CEFZON [Suspect]
     Indication: UPPER RESPIRATORY TRACT INFLAMMATION
     Route: 048
     Dates: start: 20081021, end: 20081023
  2. LOXONIN [Suspect]
     Indication: UPPER RESPIRATORY TRACT INFLAMMATION
     Route: 048
     Dates: start: 20081021, end: 20081023
  3. TRANSAMIN [Concomitant]
     Indication: DRUG USE FOR UNKNOWN INDICATION
     Dates: start: 20081021, end: 20081023
  4. PL GRAN. [Concomitant]
     Indication: DRUG USE FOR UNKNOWN INDICATION
     Dates: start: 20081021, end: 20081023
  5. OVER-THE-COUNTER DRUG [Concomitant]
     Indication: PYREXIA
     Route: 048
     Dates: start: 20081020

REACTIONS (2)
  - BLOOD IMMUNOGLOBULIN E INCREASED [None]
  - HEPATIC FUNCTION ABNORMAL [None]
